FAERS Safety Report 8137974 (Version 3)
Quarter: 2013Q2

REPORT INFORMATION
  Report Type: Spontaneous
  Country: US (occurrence: None)
  Receive Date: 20110825
  Receipt Date: 20120525
  Transmission Date: 20140414
  Serious: Yes (Other)
  Sender: FDA-Public Use
  Company Number: 331666

PATIENT
  Age: 76 Year
  Sex: Female
  Weight: 112.9 kg

DRUGS (11)
  1. VICTOZA [Suspect]
     Indication: TYPE 2 DIABETES MELLITUS
     Dosage: SUBCUTANEOUS
     Route: 058
     Dates: start: 20100422, end: 20110701
  2. LANTUS (INSULIN GLARGINE) [Concomitant]
  3. AMARYL (GLIMEPIRIDE) [Concomitant]
  4. AVAPRO (IRBESARTAN) [Concomitant]
  5. METOPROLOL (METOPROLOL) [Concomitant]
  6. CRESTOR (ROSUVASTATIN CALCIUM) [Concomitant]
  7. VITAMIN D      /00107901/ (ERGOCALCIFEROL) [Concomitant]
  8. CYMBALTA (DULOXETINE HYDROCHLORIDE) [Concomitant]
  9. ZANTAC (RANITIDINE HYDROCHLORIDE) [Concomitant]
  10. COQ-10 (UBIDECARENONE) [Concomitant]
  11. CALCIUM (CALCIUM) [Concomitant]

REACTIONS (3)
  - LIPASE INCREASED [None]
  - ABDOMINAL DISCOMFORT [None]
  - Pancreatitis [None]
